FAERS Safety Report 11081295 (Version 1)
Quarter: 2015Q2

REPORT INFORMATION
  Report Type: Spontaneous
  Country: US (occurrence: None)
  Receive Date: 20150429
  Receipt Date: 20150429
  Transmission Date: 20150821
  Serious: Yes (Other)
  Sender: FDA-Public Use
  Company Number: COL_19630_2015

PATIENT
  Age: 31 Year
  Sex: Male

DRUGS (1)
  1. MENNEN SPEED STICK REGULAR DEODORANT [Suspect]
     Active Substance: COSMETICS
     Indication: PRODUCT USED FOR UNKNOWN INDICATION
     Dosage: TWO SWIPES UNDER EACH ARM/DAILY FOR A TOTAL OF TWO DAYS/TOPICAL
     Route: 061
     Dates: start: 20150413, end: 20150414

REACTIONS (2)
  - Axillary pain [None]
  - Axillary mass [None]

NARRATIVE: CASE EVENT DATE: 20150417
